FAERS Safety Report 15535610 (Version 4)
Quarter: 2019Q3

REPORT INFORMATION
  Report Type: Spontaneous
  Country: US (occurrence: US)
  Receive Date: 20181022
  Receipt Date: 20190911
  Transmission Date: 20191004
  Serious: No
  Sender: FDA-Public Use
  Company Number: US-PFIZER INC-2018406546

PATIENT
  Age: 45 Year
  Sex: Female

DRUGS (14)
  1. LYRICA [Suspect]
     Active Substance: PREGABALIN
     Indication: BURNING SENSATION
     Dosage: UNK UNK, 3X/DAY; THRICE A DAY
  2. LYRICA [Suspect]
     Active Substance: PREGABALIN
     Indication: NERVE INJURY
  3. NORCO [Concomitant]
     Active Substance: ACETAMINOPHEN\HYDROCODONE BITARTRATE
     Indication: PAIN
     Dosage: 500 MG, DAILY (I TAKE TWO 500 MG A DAY)
  4. COENZYME Q10 [Concomitant]
     Active Substance: UBIDECARENONE
     Dosage: UNK
  5. BELVIQ [Concomitant]
     Active Substance: LORCASERIN HYDROCHLORIDE
     Indication: DECREASED APPETITE
     Dosage: UNK
  6. LEVOTHYROXINE SODIUM. [Concomitant]
     Active Substance: LEVOTHYROXINE SODIUM
     Indication: THYROID DISORDER
     Dosage: 25 UG, UNK
  7. LYRICA [Suspect]
     Active Substance: PREGABALIN
     Indication: CHEST PAIN
     Dosage: UNK, 2X/DAY (ONE IN THE MORNING AND ONE IN THE NIGHT)
  8. ZOLADEX GYN [Concomitant]
     Active Substance: GOSERELIN ACETATE
     Dosage: UNK
  9. ADIPEX [PHENTERMINE HYDROCHLORIDE] [Concomitant]
     Indication: WEIGHT DECREASED
     Dosage: UNK
  10. BABY ASPIRIN [Concomitant]
     Active Substance: ASPIRIN
     Dosage: UNK UNK, 2X/DAY
  11. LYRICA [Suspect]
     Active Substance: PREGABALIN
     Indication: NEOPLASM PROGRESSION
     Dosage: 225 MG, DAILY (ONE CAPSULE IN THE MORNING, TWO CAPSULES AT NIGHT)
     Dates: start: 2017
  12. LYRICA [Suspect]
     Active Substance: PREGABALIN
     Indication: HYPOAESTHESIA
     Dosage: UNK, 2X/DAY(2 IN THE MORNING AND 2 AT NIGHT)
  13. ANASTROZOLE. [Concomitant]
     Active Substance: ANASTROZOLE
     Indication: CHEMOTHERAPY
     Dosage: UNK UNK, 1X/DAY
  14. FOLIC ACID. [Concomitant]
     Active Substance: FOLIC ACID
     Dosage: UNK

REACTIONS (4)
  - Crying [Unknown]
  - Product dose omission [Unknown]
  - Intentional product misuse [Unknown]
  - Emotional disorder [Unknown]
